FAERS Safety Report 5078777-4 (Version None)
Quarter: 2006Q3

REPORT INFORMATION
  Report Type: 
  Country: None (occurrence: None)
  Receive Date: 20060809
  Receipt Date: 20060728
  Transmission Date: 20061208
  Serious: Yes (Other)
  Sender: FDA-Public Use
  Company Number: 200613277GDS

PATIENT
  Age: 60 Year
  Sex: Male

DRUGS (1)
  1. NEXAVAR [Suspect]
     Indication: METASTATIC RENAL CELL CARCINOMA
     Dosage: ORAL
     Route: 048

REACTIONS (2)
  - ACTINIC KERATOSIS [None]
  - SQUAMOUS CELL CARCINOMA [None]
